FAERS Safety Report 18312675 (Version 1)
Quarter: 2020Q3

REPORT INFORMATION
  Report Type: Spontaneous
  Country: GB (occurrence: GB)
  Receive Date: 20200925
  Receipt Date: 20200925
  Transmission Date: 20201103
  Serious: Yes (Hospitalization)
  Sender: FDA-Public Use
  Company Number: GB-BAXTER-2020BAX017887

PATIENT
  Sex: Male
  Weight: 88 kg

DRUGS (4)
  1. TRIOMEL 9 G/L NITROGEN 1070 KCAL/L WITH ELECTROLYTES, EMULSION FOR INF [Suspect]
     Active Substance: AMINO ACIDS\DEXTROSE\ELECTROLYTES NOS\SOYBEAN OIL
     Indication: LARGE INTESTINE PERFORATION
  2. TRIOMEL 9 G/L NITROGEN 1070 KCAL/L WITH ELECTROLYTES, EMULSION FOR INF [Suspect]
     Active Substance: AMINO ACIDS\DEXTROSE\ELECTROLYTES NOS\SOYBEAN OIL
     Indication: PANCREATITIS
     Dosage: DOSE REDUCED
     Route: 065
  3. TRIOMEL 9 G/L NITROGEN 1070 KCAL/L WITH ELECTROLYTES, EMULSION FOR INF [Suspect]
     Active Substance: AMINO ACIDS\DEXTROSE\ELECTROLYTES NOS\SOYBEAN OIL
     Indication: FUNCTIONAL GASTROINTESTINAL DISORDER
     Dosage: 90 MILLILITERS PER HOUR OVER 20 HOURS
     Route: 065
     Dates: start: 20200717
  4. SYNTHAMIN [Suspect]
     Active Substance: AMINO ACIDS
     Indication: NUTRITIONAL SUPPLEMENTATION
     Dosage: 20 MILLILITERS PER HOUR OVER 18 HOURS
     Route: 065
     Dates: start: 20200730, end: 20200826

REACTIONS (1)
  - Blood alkaline phosphatase increased [Recovering/Resolving]
